FAERS Safety Report 8953654 (Version 1)
Quarter: 2012Q4

REPORT INFORMATION
  Report Type: 
  Country: AU (occurrence: AU)
  Receive Date: 20121206
  Receipt Date: 20121206
  Transmission Date: 20130627
  Serious: Yes (Hospitalization)
  Sender: FDA-Public Use
  Company Number: AU-ASTRAZENECA-2012SE89900

PATIENT
  Age: 74 Year
  Sex: Female

DRUGS (8)
  1. ATACAND [Suspect]
     Route: 048
  2. NEXIUM [Suspect]
     Route: 048
  3. FELODUR [Suspect]
     Route: 048
  4. PANADOL [Suspect]
  5. ACTEMRA [Suspect]
     Indication: RHEUMATOID ARTHRITIS
  6. FRUSEMIDE [Suspect]
  7. LIPITOR [Suspect]
  8. SPIRACTIN [Suspect]

REACTIONS (4)
  - Blood sodium decreased [Recovered/Resolved]
  - Dehydration [Recovered/Resolved]
  - Dyspnoea [Unknown]
  - Fluid overload [Unknown]
